FAERS Safety Report 6956566-0 (Version None)
Quarter: 2010Q3

REPORT INFORMATION
  Report Type: 
  Country: None (occurrence: None)
  Receive Date: 20100830
  Receipt Date: 20100826
  Transmission Date: 20110219
  Serious: Yes (Other)
  Sender: FDA-Public Use
  Company Number: US-PFIZER INC-2010100761

PATIENT
  Sex: Male

DRUGS (2)
  1. NEURONTIN [Suspect]
     Indication: NEURALGIA
     Dosage: UNK
     Dates: start: 20090801, end: 20100701
  2. AMITRIPTYLINE [Concomitant]
     Indication: NEURALGIA
     Dosage: 25 MG, 1X/DAY
     Route: 048

REACTIONS (4)
  - DRUG INEFFECTIVE [None]
  - MULTIPLE SCLEROSIS [None]
  - PERIPHERAL NERVE DECOMPRESSION [None]
  - RADIOTHERAPY [None]
